FAERS Safety Report 6793227-5 (Version None)
Quarter: 2010Q2

REPORT INFORMATION
  Report Type: 
  Country: None (occurrence: None)
  Receive Date: 20100624
  Receipt Date: 20090828
  Transmission Date: 20101027
  Serious: Yes (Death)
  Sender: FDA-Public Use
  Company Number: US-MYLANLABS-2009S1015292

PATIENT
  Age: 54 Year
  Sex: Female

DRUGS (9)
  1. CLOZAPINE [Suspect]
     Indication: SCHIZOPHRENIA
     Route: 048
  2. CLOZAPINE [Suspect]
     Route: 048
  3. TRILEPTAL [Concomitant]
  4. GEODON [Concomitant]
  5. COGENTIN [Concomitant]
  6. KLONOPIN [Concomitant]
  7. LEXAPRO [Concomitant]
  8. REMERON [Concomitant]
  9. KEPPRA [Concomitant]

REACTIONS (1)
  - DEATH [None]
